FAERS Safety Report 7265290-9 (Version None)
Quarter: 2011Q1

REPORT INFORMATION
  Report Type: 
  Country: None (occurrence: None)
  Receive Date: 20110131
  Receipt Date: 20110126
  Transmission Date: 20110831
  Serious: Yes (Other)
  Sender: FDA-Public Use
  Company Number: BR-PFIZER INC-2010124643

PATIENT
  Age: 39 Year
  Sex: Female
  Weight: 60 kg

DRUGS (7)
  1. CHAMPIX [Suspect]
     Dosage: 2 TABLETS OF 0.5MG DAILY
     Route: 048
  2. YASMIN [Concomitant]
     Indication: CONTRACEPTION
     Dosage: 1 TABLET DAILY
     Dates: start: 20040101
  3. CHAMPIX [Suspect]
     Dosage: 1 TABLET DAILY
     Dates: end: 20101001
  4. PLURAIR [Concomitant]
     Indication: BRONCHITIS
     Dosage: UNK
  5. CHAMPIX [Suspect]
     Indication: TOBACCO USER
     Dosage: 0.5 MG, 1X/DAY
     Route: 048
     Dates: start: 20100927
  6. CHAMPIX [Suspect]
     Dosage: 1 MG, 2X/DAY, EVERY 12 HOURS
  7. ABRILAR [Concomitant]
     Indication: BRONCHITIS
     Dosage: UNK

REACTIONS (16)
  - DIZZINESS [None]
  - MALAISE [None]
  - GASTRIC DISORDER [None]
  - HYPOPHAGIA [None]
  - ANXIETY [None]
  - SOMNOLENCE [None]
  - FLATULENCE [None]
  - FEELING HOT [None]
  - FATIGUE [None]
  - DYSPEPSIA [None]
  - ABDOMINAL PAIN [None]
  - NAUSEA [None]
  - WEIGHT INCREASED [None]
  - BLOOD PRESSURE DECREASED [None]
  - SWELLING [None]
  - WEIGHT DECREASED [None]
